FAERS Safety Report 4635260-5 (Version None)
Quarter: 2005Q2

REPORT INFORMATION
  Report Type: 
  Country: None (occurrence: None)
  Receive Date: 20050414
  Receipt Date: 20041203
  Transmission Date: 20051028
  Serious: Yes (Other)
  Sender: FDA-Public Use
  Company Number: PHBS2004BR16254

PATIENT
  Age: 42 Year
  Sex: Female
  Weight: 78 kg

DRUGS (3)
  1. MELLARIL [Suspect]
     Indication: DEPRESSION
     Dosage: 50 MG, QD
     Route: 048
     Dates: start: 20041130, end: 20041201
  2. MELLARIL [Suspect]
     Dosage: 12.5 MG, QHS
     Route: 048
     Dates: start: 20041202
  3. PAROXETINE HCL [Concomitant]
     Indication: DEPRESSION
     Dosage: 20 MG, QD
     Route: 048

REACTIONS (14)
  - BURNING SENSATION [None]
  - CHEST PAIN [None]
  - CHILLS [None]
  - DIZZINESS [None]
  - DYSPNOEA [None]
  - HYPERHIDROSIS [None]
  - HYPOAESTHESIA [None]
  - LUNG DISORDER [None]
  - NAUSEA [None]
  - PULMONARY OEDEMA [None]
  - SWELLING FACE [None]
  - SYNCOPE [None]
  - VISUAL DISTURBANCE [None]
  - WEIGHT DECREASED [None]
